FAERS Safety Report 8629300 (Version 2)
Quarter: 2012Q4

REPORT INFORMATION
  Report Type: 
  Country: US (occurrence: US)
  Receive Date: 20120621
  Receipt Date: 20121015
  Transmission Date: 20130627
  Serious: Yes (Hospitalization, Other)
  Sender: FDA-Public Use
  Company Number: US-RB-041515-12

PATIENT
  Age: 40 None
  Sex: Female

DRUGS (8)
  1. SUBOXONE FILM [Suspect]
     Indication: DRUG DEPENDENCE
     Dosage: took 1/2 film twice daily
     Route: 060
     Dates: start: 2010, end: 201103
  2. SUBOXONE FILM [Suspect]
     Dosage: took 1/2 film twice daily
     Route: 060
     Dates: start: 201107, end: 201108
  3. SUBOXONE FILM [Suspect]
     Dosage: took 1/2 film twice daily intermittently
     Route: 060
     Dates: start: 201109, end: 201205
  4. SUBOXONE FILM [Suspect]
     Dosage: took 1/2 film twice daily
     Route: 060
     Dates: start: 201205, end: 20120803
  5. SUBOXONE FILM [Suspect]
     Dosage: took 3/4 film daily
     Route: 060
     Dates: start: 20120804, end: 20120904
  6. SUBOXONE FILM [Suspect]
     Dosage: took 1/2 film daily
     Route: 060
     Dates: start: 20120905
  7. DILANTIN [Concomitant]
     Indication: CONVULSION
     Route: 065
  8. NEUROTIN [Concomitant]
     Indication: NEUROPATHY PERIPHERAL
     Dosage: takes 1200 mg three times daily
     Route: 065

REACTIONS (10)
  - Substance abuse [Recovered/Resolved]
  - Therapeutic response unexpected [Not Recovered/Not Resolved]
  - Convulsion [Unknown]
  - Condition aggravated [Unknown]
  - Wrong technique in drug usage process [Not Recovered/Not Resolved]
  - Treatment noncompliance [Recovered/Resolved]
  - Convulsion [Recovered/Resolved]
  - Animal bite [Recovered/Resolved]
  - Osteomyelitis [Recovered/Resolved]
  - Blindness transient [Not Recovered/Not Resolved]
